FAERS Safety Report 8161975-0 (Version None)
Quarter: 2012Q1

REPORT INFORMATION
  Report Type: 
  Country: None (occurrence: None)
  Receive Date: 20120224
  Receipt Date: 20120221
  Transmission Date: 20120608
  Serious: Yes (Other)
  Sender: FDA-Public Use
  Company Number: US-PFIZER INC-2012006805

PATIENT
  Sex: Female
  Weight: 86.168 kg

DRUGS (3)
  1. SPIRONOLACTONE [Concomitant]
     Dosage: 25 MG, 1X/DAY
  2. EFFEXOR [Concomitant]
     Dosage: 75 MG, 1X/DAY
  3. LIPITOR [Suspect]
     Indication: BLOOD CHOLESTEROL INCREASED
     Dosage: 80 MG, 1X/DAY
     Route: 048

REACTIONS (2)
  - HERNIA [None]
  - OVARIAN CANCER RECURRENT [None]
